FAERS Safety Report 8123664-8 (Version None)
Quarter: 2012Q1

REPORT INFORMATION
  Report Type: 
  Country: None (occurrence: None)
  Receive Date: 20120208
  Receipt Date: 20120208
  Transmission Date: 20120608
  Serious: Yes (Hospitalization, Other)
  Sender: FDA-Public Use
  Company Number: PHFR2010IE04906

PATIENT
  Sex: Male
  Weight: 93 kg

DRUGS (5)
  1. LIPITOR [Concomitant]
     Dosage: 10 MG, DAILY
     Route: 048
  2. CLOZARIL [Suspect]
     Indication: SCHIZOPHRENIA
     Dosage: 400 MG, DAILY
     Route: 048
     Dates: start: 20080128
  3. PREGABALIN [Concomitant]
     Dosage: 300 MG, DAILY
     Route: 048
     Dates: start: 20091101
  4. PANTOPRAZOLE [Concomitant]
     Dosage: 40 MG, UNK
     Route: 048
  5. FLUOXETINE [Concomitant]
     Dosage: 40 MG, DAILY
     Route: 048
     Dates: start: 20091101

REACTIONS (3)
  - DIARRHOEA [None]
  - CONSTIPATION [None]
  - COLITIS [None]
